FAERS Safety Report 4693134-8 (Version None)
Quarter: 2005Q2

REPORT INFORMATION
  Report Type: 
  Country: None (occurrence: None)
  Receive Date: 20050617
  Receipt Date: 20050523
  Transmission Date: 20051028
  Serious: Yes (Death, Other)
  Sender: FDA-Public Use
  Company Number: 200514753GDDC

PATIENT
  Age: 55 Year
  Sex: Male
  Weight: 86 kg

DRUGS (4)
  1. DOCETAXEL [Suspect]
     Indication: TONGUE NEOPLASM MALIGNANT STAGE UNSPECIFIED
     Route: 042
     Dates: start: 20050504, end: 20050504
  2. FLUOROURACIL [Suspect]
     Indication: TONGUE NEOPLASM MALIGNANT STAGE UNSPECIFIED
     Route: 042
     Dates: start: 20050508, end: 20050513
  3. HYDREA [Suspect]
     Indication: TONGUE NEOPLASM MALIGNANT STAGE UNSPECIFIED
     Route: 048
     Dates: start: 20050508, end: 20050513
  4. RADIOTHERAPY [Suspect]
     Indication: TONGUE NEOPLASM MALIGNANT STAGE UNSPECIFIED

REACTIONS (9)
  - BLOOD CHLORIDE DECREASED [None]
  - BLOOD SODIUM DECREASED [None]
  - CARDIAC ARREST [None]
  - DIARRHOEA [None]
  - EATING DISORDER [None]
  - FATIGUE [None]
  - HYPERGLYCAEMIA [None]
  - LETHARGY [None]
  - TACHYCARDIA [None]
